FAERS Safety Report 7035884-4 (Version None)
Quarter: 2010Q4

REPORT INFORMATION
  Report Type: 
  Country: None (occurrence: None)
  Receive Date: 20101008
  Receipt Date: 20100930
  Transmission Date: 20110411
  Serious: Yes (Hospitalization, Other)
  Sender: FDA-Public Use
  Company Number: DE-ROXANE LABORATORIES, INC.-2010-RO-01301RO

PATIENT
  Age: 53 Year
  Sex: Male

DRUGS (4)
  1. LAMOTRIGINE [Suspect]
     Indication: EPILEPSY
     Dosage: 200 MG
  2. LAMOTRIGINE [Suspect]
     Dosage: 100 MG
  3. LAMOTRIGINE DESITIN [Suspect]
     Indication: EPILEPSY
     Dosage: 200 MG
  4. VALPROIC ACID [Suspect]
     Indication: EPILEPSY

REACTIONS (3)
  - DRUG LEVEL INCREASED [None]
  - ELECTROENCEPHALOGRAM ABNORMAL [None]
  - GRAND MAL CONVULSION [None]
